FAERS Safety Report 6089493-4 (Version None)
Quarter: 2009Q1

REPORT INFORMATION
  Report Type: 
  Country: None (occurrence: None)
  Receive Date: 20090224
  Receipt Date: 20090217
  Transmission Date: 20090719
  Serious: Yes (Death, Hospitalization)
  Sender: FDA-Public Use
  Company Number: US-GILEAD-2009-0020378

PATIENT
  Sex: Female
  Weight: 59.928 kg

DRUGS (9)
  1. LETAIRIS [Suspect]
     Indication: PULMONARY HYPERTENSION
     Route: 048
     Dates: start: 20080411
  2. REVATIO [Concomitant]
  3. HYDROCHLOROTHIAZIDE [Concomitant]
  4. AVAPRO [Concomitant]
  5. SYNTHROID [Concomitant]
  6. LEVAQUIN [Concomitant]
  7. HYDROCODONE/GUAIFENESIN [Concomitant]
  8. PROMETHAZINE [Concomitant]
  9. AMBIEN [Concomitant]

REACTIONS (3)
  - ANAEMIA [None]
  - BREAST CANCER METASTATIC [None]
  - THROMBOCYTOPENIA [None]
